FAERS Safety Report 7530601-3 (Version None)
Quarter: 2011Q2

REPORT INFORMATION
  Report Type: 
  Country: None (occurrence: None)
  Receive Date: 20110607
  Receipt Date: 20110525
  Transmission Date: 20111010
  Serious: Yes (Hospitalization, Other)
  Sender: FDA-Public Use
  Company Number: US-BAYER-201040024NA

PATIENT
  Age: 45 Year
  Sex: Female
  Weight: 58 kg

DRUGS (4)
  1. EFFEXOR [Concomitant]
     Indication: DEPRESSION
  2. YASMIN [Suspect]
     Indication: ACNE
     Dates: start: 20040101
  3. KLONOPIN [Concomitant]
  4. SEROQUEL [Concomitant]

REACTIONS (3)
  - DEEP VEIN THROMBOSIS [None]
  - PULMONARY EMBOLISM [None]
  - THROMBOSIS [None]
